FAERS Safety Report 5105088-0 (Version None)
Quarter: 2006Q3

REPORT INFORMATION
  Report Type: 
  Country: None (occurrence: None)
  Receive Date: 20060911
  Receipt Date: 20060829
  Transmission Date: 20061208
  Serious: Yes (Hospitalization, Other)
  Sender: FDA-Public Use
  Company Number: 2006105645

PATIENT
  Age: 67 Year
  Sex: Male

DRUGS (3)
  1. NEURONTIN [Suspect]
     Indication: PAIN
     Dosage: 3600 MG (DAILY)
  2. OXYCONTIN [Concomitant]
  3. CELEBREX [Concomitant]

REACTIONS (3)
  - GASTROINTESTINAL DISORDER [None]
  - GASTROINTESTINAL NEOPLASM [None]
  - INTESTINAL STENOSIS [None]
